FAERS Safety Report 24730984 (Version 1)
Quarter: 2024Q4

REPORT INFORMATION
  Report Type: Spontaneous
  Country: US (occurrence: US)
  Receive Date: 20241213
  Receipt Date: 20241213
  Transmission Date: 20250114
  Serious: No
  Sender: RECKITT BENCKISER
  Company Number: US-PROD-AS2-212756134-20-24-USA-RB-0008508

PATIENT
  Age: 24 Year
  Sex: Female
  Weight: 90.718 kg

DRUGS (1)
  1. DELSYM COUGH [Suspect]
     Active Substance: DEXTROMETHORPHAN HYDROBROMIDE
     Indication: Cough
     Dosage: TOOK ACCIDENTALLY 8-10 ADULT CUPS
     Route: 048
     Dates: start: 20240906

REACTIONS (3)
  - Dizziness [Recovered/Resolved]
  - Mydriasis [Recovered/Resolved]
  - Accidental overdose [Recovered/Resolved]

NARRATIVE: CASE EVENT DATE: 20240906
